FAERS Safety Report 9992962 (Version 1)
Quarter: 2014Q1

REPORT INFORMATION
  Report Type: Report from Study
  Country: US (occurrence: US)
  Receive Date: 20140310
  Receipt Date: 20140310
  Transmission Date: 20141002
  Serious: No
  Sender: FDA-Public Use
  Company Number: US-ABBVIE-13P-163-1101422-00

PATIENT
  Sex: Female
  Weight: 67.65 kg

DRUGS (2)
  1. LUPRON DEPOT [Suspect]
     Indication: UTERINE LEIOMYOMA
     Route: 030
     Dates: start: 20130520
  2. NATURES THYROID [Concomitant]
     Indication: PRODUCT USED FOR UNKNOWN INDICATION

REACTIONS (6)
  - Hot flush [Unknown]
  - Dizziness [Unknown]
  - Vision blurred [Unknown]
  - Vertigo [Unknown]
  - Headache [Unknown]
  - Halo vision [Unknown]
